FAERS Safety Report 21633332 (Version 1)
Quarter: 2022Q4

REPORT INFORMATION
  Report Type: Spontaneous
  Country: US (occurrence: US)
  Receive Date: 20221123
  Receipt Date: 20221123
  Transmission Date: 20230112
  Serious: Yes (Other)
  Sender: FDA-Public Use
  Company Number: US-BRISTOL-MYERS SQUIBB COMPANY-2022-141770

PATIENT
  Age: 72 Year
  Sex: Male

DRUGS (2)
  1. ONUREG [Suspect]
     Active Substance: AZACITIDINE
     Indication: Acute myeloid leukaemia
     Dosage: DOSE: 300MG;  FREQ: ^300 MG QD ON DAYS 1-14 OF EACH 28-DAY TREATMENT CYCLE^
     Route: 048
     Dates: start: 202201, end: 202211
  2. VENETOCLAX [Suspect]
     Active Substance: VENETOCLAX
     Indication: Acute myeloid leukaemia
     Dosage: 200 MG QD ON DAYS 1-21 OF EACH 28-DAY TREATMENT CYCLE
     Route: 065
     Dates: start: 202109

REACTIONS (2)
  - Off label use [Unknown]
  - Thrombocytopenia [Unknown]
